FAERS Safety Report 4296236-3 (Version None)
Quarter: 2004Q1

REPORT INFORMATION
  Report Type: 
  Country: None (occurrence: None)
  Receive Date: 20040217
  Receipt Date: 20030924
  Transmission Date: 20041129
  Serious: No
  Sender: FDA-Public Use
  Company Number: US-GLAXOSMITHKLINE-A0427340A

PATIENT
  Sex: Female

DRUGS (6)
  1. LAMICTAL [Suspect]
     Dosage: 150MG TWICE PER DAY
     Route: 048
  2. CARBAMAZEPINE [Concomitant]
     Dosage: 200MG THREE TIMES PER DAY
  3. OSCAL [Concomitant]
  4. ZANTAC [Concomitant]
  5. SYNTHROID [Concomitant]
  6. MIACALCIN [Concomitant]

REACTIONS (1)
  - DRUG LEVEL INCREASED [None]
